FAERS Safety Report 8759611 (Version 1)
Quarter: 2012Q4

REPORT INFORMATION
  Report Type: 
  Country: JP (occurrence: JP)
  Receive Date: 20120829
  Receipt Date: 20120829
  Transmission Date: 20130627
  Serious: Yes (Hospitalization)
  Sender: FDA-Public Use
  Company Number: JP-ASTRAZENECA-2012SE50564

PATIENT
  Age: 55 Year
  Sex: Male

DRUGS (12)
  1. CRESTOR [Suspect]
     Route: 048
     Dates: start: 20120326
  2. ACTOS [Concomitant]
     Indication: DIABETES MELLITUS
     Route: 065
     Dates: start: 20080128
  3. AMARYL [Concomitant]
     Indication: DIABETES MELLITUS
     Route: 065
     Dates: start: 20080128
  4. GLACTIV [Concomitant]
     Indication: DIABETES MELLITUS
     Route: 065
     Dates: start: 20110124
  5. METGLUCO [Concomitant]
     Indication: DIABETES MELLITUS
     Route: 065
     Dates: start: 20110725
  6. METHYCOBAL [Concomitant]
     Route: 065
     Dates: start: 20060522
  7. CARNACULIN [Concomitant]
     Route: 065
     Dates: start: 20060522
  8. STOMIN A [Concomitant]
     Route: 065
     Dates: start: 20060522
  9. OPALMON [Concomitant]
     Route: 065
     Dates: start: 20060522
  10. MENILET [Concomitant]
     Route: 065
     Dates: start: 20060522
  11. GOSHAJINKIGAN [Concomitant]
     Route: 048
     Dates: start: 20060522
  12. ACINON [Concomitant]
     Route: 065
     Dates: start: 20080128

REACTIONS (2)
  - Decreased appetite [Not Recovered/Not Resolved]
  - Constipation [Not Recovered/Not Resolved]
